FAERS Safety Report 10093535 (Version 1)
Quarter: 2014Q2

REPORT INFORMATION
  Report Type: Spontaneous
  Country: US (occurrence: US)
  Receive Date: 20140421
  Receipt Date: 20140421
  Transmission Date: 20141212
  Serious: No
  Sender: FDA-Public Use
  Company Number: US-SANOFI-AVENTIS-2013SA078249

PATIENT
  Age: 60 Year
  Sex: Male

DRUGS (2)
  1. ALLEGRA [Suspect]
     Indication: SINUSITIS
     Route: 048
     Dates: start: 201306, end: 20130704
  2. VITAMINS [Concomitant]

REACTIONS (2)
  - Amphetamines positive [Unknown]
  - Off label use [Unknown]
